FAERS Safety Report 10601704 (Version 1)
Quarter: 2014Q4

REPORT INFORMATION
  Report Type: Spontaneous
  Country: US (occurrence: US)
  Receive Date: 20141124
  Receipt Date: 20141124
  Transmission Date: 20150529
  Serious: No
  Sender: FDA-Public Use
  Company Number: US-PFIZER INC-2014318323

PATIENT
  Sex: Female

DRUGS (2)
  1. DILANTIN [Suspect]
     Active Substance: PHENYTOIN
  2. PHENOBARBITAL. [Suspect]
     Active Substance: PHENOBARBITAL

REACTIONS (2)
  - Noninfective gingivitis [Unknown]
  - Pulpitis dental [Unknown]
